FAERS Safety Report 12848986 (Version 1)
Quarter: 2016Q4

REPORT INFORMATION
  Report Type: Spontaneous
  Country: US (occurrence: US)
  Receive Date: 20161014
  Receipt Date: 20161014
  Transmission Date: 20170207
  Serious: Yes (Other)
  Sender: FDA-Public Use
  Company Number: US-ASTRAZENECA-2016SF06919

PATIENT
  Age: 821 Month
  Sex: Female
  Weight: 90 kg

DRUGS (15)
  1. CALCIUM [Concomitant]
     Active Substance: CALCIUM
     Route: 048
  2. MULTIVITAMIN [Concomitant]
     Active Substance: VITAMINS
     Dosage: DAILY
     Route: 048
  3. FLUTICASONE [Concomitant]
     Active Substance: FLUTICASONE\FLUTICASONE PROPIONATE
     Dosage: 1.0DF UNKNOWN
     Route: 055
     Dates: start: 20130227
  4. LORATA-DINE [Concomitant]
     Dosage: 10-240MG DAILY
     Route: 048
  5. FASLODEX [Suspect]
     Active Substance: FULVESTRANT
     Route: 030
  6. EXEMESTANE. [Concomitant]
     Active Substance: EXEMESTANE
     Route: 048
     Dates: start: 20110606
  7. EXEMESTANE. [Concomitant]
     Active Substance: EXEMESTANE
     Route: 048
     Dates: start: 201501
  8. EVEROLIMUS [Concomitant]
     Active Substance: EVEROLIMUS
  9. ZOLPIDEM [Concomitant]
     Active Substance: ZOLPIDEM\ZOLPIDEM TARTRATE
     Dosage: 10.0MG AS REQUIRED
     Route: 048
     Dates: start: 20130218
  10. SINGULAIR [Concomitant]
     Active Substance: MONTELUKAST SODIUM
     Dosage: 10.0MG UNKNOWN
     Route: 048
     Dates: start: 20130227
  11. IBRANCE [Concomitant]
     Active Substance: PALBOCICLIB
     Route: 048
     Dates: start: 20150224
  12. AMLODIPINE BESYLATE-BENAZEPRIL [Concomitant]
     Dosage: 5-20MG DAILY
     Route: 048
  13. ARMOUR THYROID [Concomitant]
     Active Substance: THYROID, PORCINE
  14. OMEGA 3 [Concomitant]
     Active Substance: OMEGA-3 FATTY ACIDS
     Route: 048
  15. MELATONIN [Concomitant]
     Active Substance: MELATONIN
     Route: 060

REACTIONS (6)
  - Malignant neoplasm progression [Unknown]
  - Headache [Unknown]
  - Fatigue [Unknown]
  - Dysgeusia [Unknown]
  - Diarrhoea [Unknown]
  - Nausea [Unknown]

NARRATIVE: CASE EVENT DATE: 201411
